FAERS Safety Report 23559976 (Version 1)
Quarter: 2024Q1

REPORT INFORMATION
  Report Type: Spontaneous
  Country: CN (occurrence: CN)
  Receive Date: 20240223
  Receipt Date: 20240223
  Transmission Date: 20240410
  Serious: Yes (Life-Threatening, Other)
  Sender: FDA-Public Use
  Company Number: CN-FreseniusKabi-FK202402733

PATIENT
  Age: 66 Year
  Sex: Female
  Weight: 61 kg

DRUGS (5)
  1. PROPOFOL [Suspect]
     Active Substance: PROPOFOL
     Indication: General anaesthesia
     Dosage: FORM OF ADMIN.- INJECTION?ROUTE OF ADMIN.- INTRAVENOUS (NOT OTHERWISE SPECIFIED) ( INT )
     Route: 042
     Dates: start: 20240204, end: 20240204
  2. SUFENTANIL CITRATE [Suspect]
     Active Substance: SUFENTANIL CITRATE
     Indication: General anaesthesia
     Dosage: FORM OF ADMIN.- INJECTION?ROUTE OF ADMIN.- INTRAVENOUS (NOT OTHERWISE SPECIFIED) ( INT )
     Route: 042
     Dates: start: 20240204, end: 20240204
  3. CEFAZOLIN SODIUM [Suspect]
     Active Substance: CEFAZOLIN SODIUM
     Indication: Prophylaxis
     Dosage: FORM OF ADMIN.- POWDER FOR INJECTION ?ROUTE OF ADMIN.- INTRAVENOUS DRIP ( IM )
     Dates: start: 20240204, end: 20240204
  4. REMIMAZOLAM TOSYLATE [Suspect]
     Active Substance: REMIMAZOLAM TOSYLATE
     Indication: General anaesthesia
     Dosage: FORM OF ADMIN.- POWDER FOR INJECTION ?ROUTE OF ADMIN.- INTRAVENOUS (NOT OTHERWISE SPECIFIED) ( INT )
     Dates: start: 20240204, end: 20240204
  5. CISATRACURIUM BESYLATE [Suspect]
     Active Substance: CISATRACURIUM BESYLATE
     Indication: General anaesthesia
     Dosage: FORM OF ADMIN.- INJECTION ?ROUTE OF ADMIN.- INTRAVENOUS (NOT OTHERWISE SPECIFIED) ( INT )
     Dates: start: 20240204, end: 20240204

REACTIONS (1)
  - Anaphylactic shock [Recovering/Resolving]

NARRATIVE: CASE EVENT DATE: 20240204
